FAERS Safety Report 7625903-6 (Version None)
Quarter: 2011Q3

REPORT INFORMATION
  Report Type: 
  Country: None (occurrence: None)
  Receive Date: 20110721
  Receipt Date: 20110721
  Transmission Date: 20111222
  Serious: Yes (Life-Threatening, Other)
  Sender: FDA-Public Use
  Company Number: None

PATIENT
  Age: 54 Year
  Sex: Male
  Weight: 103.41 kg

DRUGS (1)
  1. TRIAD ALCOHOL PADS [Suspect]
     Indication: INFECTION PROPHYLAXIS
     Dosage: 1-PAD
     Route: 061
     Dates: start: 20100611, end: 20110520

REACTIONS (11)
  - DIARRHOEA [None]
  - CONFUSIONAL STATE [None]
  - DISTURBANCE IN ATTENTION [None]
  - LOSS OF CONSCIOUSNESS [None]
  - FURUNCLE [None]
  - WEIGHT DECREASED [None]
  - RASH GENERALISED [None]
  - VOMITING [None]
  - CRYING [None]
  - ONYCHOMYCOSIS [None]
  - DEPRESSION [None]
